FAERS Safety Report 6455695-8 (Version None)
Quarter: 2009Q4

REPORT INFORMATION
  Report Type: 
  Country: None (occurrence: None)
  Receive Date: 20091125
  Receipt Date: 20091104
  Transmission Date: 20100525
  Serious: No
  Sender: FDA-Public Use
  Company Number: US-ABBOTT-09P-163-0606858-00

PATIENT
  Sex: Female
  Weight: 103.06 kg

DRUGS (3)
  1. SIMCOR [Suspect]
     Indication: BLOOD CHOLESTEROL INCREASED
     Dosage: 500MG/20MG
     Dates: start: 20091028, end: 20091030
  2. BLOOD PRESSURE PILL [Concomitant]
     Indication: BLOOD PRESSURE
     Dosage: NOT TAKING IT BECAUSE BLOOD PRESSURE HAS BEEN FINE
  3. ASPIRIN [Concomitant]
     Indication: DRUG USE FOR UNKNOWN INDICATION

REACTIONS (2)
  - FLUSHING [None]
  - MYALGIA [None]
